FAERS Safety Report 9562208 (Version 1)
Quarter: 2013Q3

REPORT INFORMATION
  Report Type: Spontaneous
  Country: GB (occurrence: None)
  Receive Date: 20130925
  Receipt Date: 20130925
  Transmission Date: 20140515
  Serious: Yes (Hospitalization)
  Sender: FDA-Public Use
  Company Number: AUR-APL-2013-07719

PATIENT
  Age: 60 Year
  Sex: Female
  Weight: 52 kg

DRUGS (4)
  1. GABAPENTIN [Suspect]
     Indication: NEURALGIA
     Dosage: 300 MG (100 MG, 3 IN 1 D),ORAL
     Route: 048
  2. ADCAL D3 (LEKOVIT CA) [Concomitant]
  3. NAPROXEN (NAPROXEN) [Concomitant]
  4. PARACETAMOL (PARACETAMOL) [Concomitant]

REACTIONS (7)
  - Confusional state [None]
  - Hallucination [None]
  - Lethargy [None]
  - Muscular weakness [None]
  - Abnormal behaviour [None]
  - Aggression [None]
  - Gait disturbance [None]
